FAERS Safety Report 16556407 (Version 2)
Quarter: 2019Q3

REPORT INFORMATION
  Report Type: Spontaneous
  Country: JP (occurrence: JP)
  Receive Date: 20190710
  Receipt Date: 20190812
  Transmission Date: 20191004
  Serious: Yes (Hospitalization)
  Sender: FDA-Public Use
  Company Number: JP-TAKEDA-2019TJP012855AA

PATIENT
  Age: 7 Decade
  Sex: Female

DRUGS (5)
  1. INISYNC COMBINATION TABLETS [Suspect]
     Active Substance: ALOGLIPTIN BENZOATE\METFORMIN HYDROCHLORIDE
     Indication: DIABETES MELLITUS
     Dosage: UNK
     Route: 048
  2. LIPITOR [Concomitant]
     Active Substance: ATORVASTATIN CALCIUM
     Dosage: 5 MILLIGRAM
     Route: 065
  3. LIPITOR [Concomitant]
     Active Substance: ATORVASTATIN CALCIUM
     Dosage: 10 MILLIGRAM
     Route: 065
  4. MICARDIS [Concomitant]
     Active Substance: TELMISARTAN
     Dosage: 40 MILLIGRAM
     Route: 065
  5. MICARDIS [Concomitant]
     Active Substance: TELMISARTAN
     Dosage: 20 MILLIGRAM
     Route: 065

REACTIONS (1)
  - Autoimmune hepatitis [Unknown]
